FAERS Safety Report 9384211 (Version 1)
Quarter: 2013Q3

REPORT INFORMATION
  Report Type: Spontaneous
  Country: US (occurrence: US)
  Receive Date: 20130705
  Receipt Date: 20130705
  Transmission Date: 20140515
  Serious: Yes (Disabling)
  Sender: FDA-Public Use
  Company Number: US-ASTRAZENECA-2013SE49716

PATIENT
  Age: 74 Year
  Sex: Female
  Weight: 65.8 kg

DRUGS (5)
  1. CRESTOR [Suspect]
     Indication: BLOOD CHOLESTEROL INCREASED
     Route: 048
     Dates: start: 201302
  2. CYMBALTA [Concomitant]
     Indication: PAIN
     Dates: start: 2009
  3. TEGRETOL [Concomitant]
     Indication: NEURALGIA
  4. BACLOFEN [Concomitant]
     Indication: MUSCLE RELAXANT THERAPY
  5. LORTAB [Concomitant]
     Indication: PAIN
     Dosage: 10/325 MG PRN

REACTIONS (3)
  - Pain [Recovered/Resolved]
  - Pain in extremity [Recovered/Resolved]
  - Neuropathy peripheral [Recovered/Resolved]
